FAERS Safety Report 5911151-4 (Version None)
Quarter: 2008Q4

REPORT INFORMATION
  Report Type: 
  Country: None (occurrence: None)
  Receive Date: 20081007
  Receipt Date: 20080318
  Transmission Date: 20090506
  Serious: No
  Sender: FDA-Public Use
  Company Number: US-BRISTOL-MYERS SQUIBB COMPANY-14118749

PATIENT
  Age: 50 Year
  Sex: Male
  Weight: 102 kg

DRUGS (7)
  1. AVAPRO [Suspect]
     Indication: HYPERTENSION
  2. ASACOL [Concomitant]
  3. TRICOR [Concomitant]
  4. FLUOXETINE [Concomitant]
  5. VYTORIN [Concomitant]
  6. NEXIUM [Concomitant]
  7. FOLIC ACID [Concomitant]

REACTIONS (2)
  - COUGH [None]
  - OROPHARYNGEAL PAIN [None]
